FAERS Safety Report 14326424 (Version 1)
Quarter: 2017Q4

REPORT INFORMATION
  Report Type: Report from Study
  Country: None (occurrence: US)
  Receive Date: 20171227
  Receipt Date: 20171227
  Transmission Date: 20180321
  Serious: Yes (Other)
  Sender: FDA-Public Use
  Company Number: US-ABBVIE-17K-163-2200795-00

PATIENT
  Sex: Female

DRUGS (1)
  1. HUMIRA [Suspect]
     Active Substance: ADALIMUMAB
     Indication: RHEUMATOID ARTHRITIS
     Route: 058
     Dates: start: 1997

REACTIONS (14)
  - Autoimmune disorder [Not Recovered/Not Resolved]
  - Anaemia [Not Recovered/Not Resolved]
  - Paraesthesia [Unknown]
  - Sjogren^s syndrome [Not Recovered/Not Resolved]
  - Toe amputation [Not Recovered/Not Resolved]
  - Pityriasis lichenoides et varioliformis acuta [Not Recovered/Not Resolved]
  - Vasculitis [Not Recovered/Not Resolved]
  - Device material issue [Unknown]
  - Amputation stump pain [Unknown]
  - Finger deformity [Unknown]
  - Visual impairment [Unknown]
  - Paralysis [Not Recovered/Not Resolved]
  - Back disorder [Unknown]
  - Osteoarthritis [Not Recovered/Not Resolved]
